FAERS Safety Report 18599714 (Version 3)
Quarter: 2022Q2

REPORT INFORMATION
  Report Type: Spontaneous
  Country: US (occurrence: US)
  Receive Date: 20201210
  Receipt Date: 20220404
  Transmission Date: 20220720
  Serious: Yes (Hospitalization, Other)
  Sender: FDA-Public Use
  Company Number: US-GLAXOSMITHKLINE-US2020GSK244897

PATIENT
  Age: 76 Year
  Sex: Male

DRUGS (6)
  1. ZANTAC [Suspect]
     Active Substance: RANITIDINE HYDROCHLORIDE
     Indication: Product used for unknown indication
     Dosage: UNK
     Route: 065
  2. RANITIDINE HYDROCHLORIDE [Suspect]
     Active Substance: RANITIDINE HYDROCHLORIDE
     Indication: Product used for unknown indication
     Dosage: UNK
     Route: 065
     Dates: start: 201505, end: 2019
  3. RANITIDINE HYDROCHLORIDE [Suspect]
     Active Substance: RANITIDINE HYDROCHLORIDE
     Dosage: 150 MG, BID
     Route: 065
  4. RANITIDINE HYDROCHLORIDE [Suspect]
     Active Substance: RANITIDINE HYDROCHLORIDE
     Indication: Product used for unknown indication
     Dosage: 150 MG, QD
     Route: 048
     Dates: start: 20120110, end: 20200304
  5. RANITIDINE HYDROCHLORIDE [Suspect]
     Active Substance: RANITIDINE HYDROCHLORIDE
     Indication: Product used for unknown indication
     Dosage: 150 MG
     Route: 065
     Dates: start: 20121201, end: 20130802
  6. ZANTAC [Suspect]
     Active Substance: RANITIDINE HYDROCHLORIDE
     Indication: Gastrooesophageal reflux disease
     Dosage: UNK UNK, WE
     Route: 065
     Dates: start: 2007, end: 2015

REACTIONS (11)
  - Prostate cancer [Unknown]
  - Neoplasm malignant [Unknown]
  - Prostatic dysplasia [Unknown]
  - Hypertensive nephropathy [Unknown]
  - Benign prostatic hyperplasia [Unknown]
  - Prostatomegaly [Unknown]
  - Bladder wall calcification [Unknown]
  - Neoplasm prostate [Unknown]
  - Prostatitis [Unknown]
  - Prostatic specific antigen abnormal [Unknown]
  - Prostatic dysplasia [Unknown]

NARRATIVE: CASE EVENT DATE: 20190204
